FAERS Safety Report 6312792-5 (Version None)
Quarter: 2009Q3

REPORT INFORMATION
  Report Type: 
  Country: None (occurrence: None)
  Receive Date: 20090818
  Receipt Date: 20090806
  Transmission Date: 20100115
  Serious: Yes (Hospitalization)
  Sender: FDA-Public Use
  Company Number: AU-WYE-G04212309

PATIENT
  Age: 70 Year
  Sex: Female

DRUGS (1)
  1. PRISTIQ [Suspect]
     Dosage: 50MG FREQUENCY UNKNOWN, STARTED ABOUT 3 MONTHS AGO 2009 AND STOPPED ON ADMISSION ON 27-JUL-2009

REACTIONS (1)
  - CARDIAC FAILURE [None]
